FAERS Safety Report 5498169-3 (Version None)
Quarter: 2007Q4

REPORT INFORMATION
  Report Type: 
  Country: None (occurrence: None)
  Receive Date: 20071025
  Receipt Date: 20070427
  Transmission Date: 20080405
  Serious: No
  Sender: FDA-Public Use
  Company Number: A0646195A

PATIENT
  Age: 74 Year
  Sex: Female

DRUGS (4)
  1. ADVAIR DISKUS 100/50 [Suspect]
     Indication: PULMONARY FIBROSIS
     Dosage: 1PUFF TWICE PER DAY
     Route: 055
     Dates: start: 19970101
  2. VERAPAMIL [Concomitant]
  3. LANOXIN [Concomitant]
  4. HYDROCHLOROTHIAZIDE [Concomitant]

REACTIONS (2)
  - OSTEOPENIA [None]
  - SPINAL DISORDER [None]
